FAERS Safety Report 7735416-9 (Version None)
Quarter: 2011Q3

REPORT INFORMATION
  Report Type: 
  Country: None (occurrence: None)
  Receive Date: 20110907
  Receipt Date: 20110829
  Transmission Date: 20111222
  Serious: Yes (Death, Other)
  Sender: FDA-Public Use
  Company Number: US-CELGENEUS-163-21880-11083421

PATIENT
  Age: 71 Year
  Sex: Female

DRUGS (11)
  1. ASPIRIN [Concomitant]
     Route: 065
  2. ARZERRA [Concomitant]
     Route: 065
     Dates: start: 20110101
  3. HYDROCORTISONE [Concomitant]
     Route: 065
  4. REVLIMID [Suspect]
     Dosage: 2.5 MILLIGRAM
     Route: 048
     Dates: start: 20110706, end: 20110101
  5. ALLOPURINOL [Concomitant]
     Route: 065
  6. DIPHENHYDRAMINE HCL [Concomitant]
     Route: 065
  7. ONDANSETRON [Concomitant]
     Route: 065
  8. ACYCLOVIR [Concomitant]
     Route: 065
  9. FAMOTIDINE [Concomitant]
     Route: 065
  10. SOLU-CORTEF [Concomitant]
     Route: 065
  11. REVLIMID [Suspect]
     Dosage: 5 MILLIGRAM
     Route: 048
     Dates: start: 20110601, end: 20110701

REACTIONS (2)
  - PANCYTOPENIA [None]
  - DEATH [None]
